FAERS Safety Report 10090082 (Version 1)
Quarter: 2014Q2

REPORT INFORMATION
  Report Type: Spontaneous
  Country: IT (occurrence: IT)
  Receive Date: 20140421
  Receipt Date: 20140421
  Transmission Date: 20141212
  Serious: Yes (Hospitalization)
  Sender: FDA-Public Use
  Company Number: PHHY2014IT044982

PATIENT
  Age: 80 Year
  Sex: Male

DRUGS (3)
  1. OLANZAPINE [Suspect]
     Indication: PSYCHOTIC DISORDER
     Dates: end: 20140325
  2. VALDORM [Concomitant]
  3. EN [Concomitant]
     Route: 048

REACTIONS (2)
  - Psychomotor hyperactivity [Recovering/Resolving]
  - Sopor [Recovering/Resolving]
